FAERS Safety Report 6147657-5 (Version None)
Quarter: 2009Q2

REPORT INFORMATION
  Report Type: 
  Country: None (occurrence: None)
  Receive Date: 20090408
  Receipt Date: 20090326
  Transmission Date: 20091009
  Serious: Yes (Hospitalization, Other)
  Sender: FDA-Public Use
  Company Number: JP-ELI_LILLY_AND_COMPANY-JP200902001215

PATIENT
  Sex: Female
  Weight: 59.7 kg

DRUGS (17)
  1. DULOXETINE HYDROCHLORIDE [Suspect]
     Indication: DIABETIC NEUROPATHY
     Dosage: 20 MG, DAILY (1/D)
     Route: 048
     Dates: start: 20080903, end: 20080911
  2. DULOXETINE HYDROCHLORIDE [Suspect]
     Dosage: UNK, DAILY (1/D)
     Route: 048
     Dates: start: 20080912, end: 20090120
  3. DULOXETINE HYDROCHLORIDE [Suspect]
     Dosage: 20 MG, DAILY (1/D)
     Route: 048
     Dates: start: 20090121, end: 20090127
  4. ASPIRIN [Concomitant]
     Indication: THROMBOSIS PROPHYLAXIS
     Dosage: 100 MG, DAILY (1/D)
     Route: 048
  5. ADALAT CR /SCH/ [Concomitant]
     Indication: HYPERTENSION
     Dosage: 40 MG, DAILY (1/D)
     Route: 048
  6. MEVALOTIN [Concomitant]
     Indication: HYPERLIPIDAEMIA
     Dosage: 10 MG, DAILY (1/D)
     Route: 048
  7. BLOPRESS [Concomitant]
     Indication: HYPERTENSION
     Dosage: 12 MG, DAILY (1/D)
     Route: 048
  8. SODIUM BICARBONATE [Concomitant]
     Indication: RENAL TUBULAR ACIDOSIS
     Dosage: 12 MG, DAILY (1/D)
     Route: 048
  9. INNOLET [Concomitant]
     Indication: DIABETES MELLITUS
     Dosage: 12 U, DAILY (1/D)
     Route: 042
  10. TOWK [Concomitant]
     Indication: RHINITIS
  11. INNOLET [Concomitant]
     Dosage: 12 U, DAILY (1/D)
     Route: 042
  12. CALONAL [Concomitant]
     Indication: HEADACHE
     Route: 048
  13. PURSENNID [Concomitant]
     Indication: CONSTIPATION
     Route: 048
  14. EPOGIN [Concomitant]
     Indication: NEPHROGENIC ANAEMIA
     Dosage: 12000 U, DAILY (1/D)
     Route: 042
  15. EVISTA [Concomitant]
     Indication: OSTEOPOROSIS
     Dosage: 60 MG, DAILY (1/D)
     Route: 048
  16. DOXAZOSIN MESILATE [Concomitant]
     Indication: HYPERTENSION
     Dosage: 4 MG, DAILY (1/D)
     Route: 048
  17. ATELEC [Concomitant]
     Indication: HYPERTENSION
     Dosage: 10 MG, DAILY (1/D)
     Route: 048

REACTIONS (1)
  - COLON CANCER [None]
